FAERS Safety Report 6111209-3 (Version None)
Quarter: 2009Q1

REPORT INFORMATION
  Report Type: 
  Country: None (occurrence: None)
  Receive Date: 20090309
  Receipt Date: 20090226
  Transmission Date: 20090719
  Serious: Yes (Hospitalization)
  Sender: FDA-Public Use
  Company Number: 2009-192318-NL

PATIENT
  Age: 83 Year
  Sex: Female

DRUGS (7)
  1. MIRTAZAPINE [Suspect]
     Indication: DEPRESSION
     Dosage: 15 MG ORAL
     Route: 048
     Dates: start: 20090201, end: 20090209
  2. LANSOPRAZOLE [Concomitant]
  3. SIMVASTATIN [Concomitant]
  4. MANIDIPINE HYDROCHLORIDE [Concomitant]
  5. GLIMEPIRIDE [Concomitant]
  6. AMIODARONE HCL [Concomitant]
  7. WARFARIN SODIUM [Concomitant]

REACTIONS (1)
  - HYPONATRAEMIA [None]
